FAERS Safety Report 5673237-1 (Version None)
Quarter: 2008Q1

REPORT INFORMATION
  Report Type: 
  Country: None (occurrence: None)
  Receive Date: 20080319
  Receipt Date: 20080311
  Transmission Date: 20080703
  Serious: Yes (Death)
  Sender: FDA-Public Use
  Company Number: MX-ELI_LILLY_AND_COMPANY-MX200803002378

PATIENT
  Age: 58 Year
  Sex: Female

DRUGS (2)
  1. GEMZAR [Suspect]
     Indication: BREAST CANCER STAGE IV
     Dosage: UNK, UNKNOWN
     Route: 065
  2. DOCETAXEL [Concomitant]
     Indication: BREAST CANCER STAGE IV
     Dosage: UNK, UNKNOWN
     Route: 065

REACTIONS (1)
  - STOMATITIS [None]
